FAERS Safety Report 7945456-2 (Version None)
Quarter: 2011Q4

REPORT INFORMATION
  Report Type: 
  Country: None (occurrence: None)
  Receive Date: 20111129
  Receipt Date: 20111118
  Transmission Date: 20120403
  Serious: Yes (Other)
  Sender: FDA-Public Use
  Company Number: US-CELGENEUS-163-21880-11103220

PATIENT
  Sex: Male

DRUGS (10)
  1. PRASUGREL [Concomitant]
     Route: 065
  2. REVLIMID [Suspect]
     Indication: MULTIPLE MYELOMA
     Dosage: 5 MILLIGRAM
     Route: 048
     Dates: start: 20100322
  3. ASPIRIN [Concomitant]
     Route: 065
  4. FAMOTIDINE [Concomitant]
     Route: 065
  5. NITROGLYCERIN [Concomitant]
     Route: 065
  6. CYMBALTA [Concomitant]
     Route: 065
  7. LAMICTAL [Concomitant]
     Route: 065
  8. PRAVASTATIN [Concomitant]
     Route: 065
  9. REVLIMID [Suspect]
     Dosage: 15 MILLIGRAM
     Route: 048
     Dates: start: 20100401
  10. DEXAMETHASONE [Concomitant]
     Route: 065

REACTIONS (5)
  - CONTUSION [None]
  - DIARRHOEA [None]
  - THROMBOSIS [None]
  - CHEST PAIN [None]
  - HAEMORRHAGE [None]
